FAERS Safety Report 21529308 (Version 1)
Quarter: 2022Q4

REPORT INFORMATION
  Report Type: Spontaneous
  Country: US (occurrence: US)
  Receive Date: 20221031
  Receipt Date: 20221031
  Transmission Date: 20230113
  Serious: Yes (Other)
  Sender: FDA-Public Use
  Company Number: US-SLATE RUN PHARMACEUTICALS-22US001390

PATIENT

DRUGS (4)
  1. SODIUM NITROPRUSSIDE [Suspect]
     Active Substance: SODIUM NITROPRUSSIDE
     Indication: Product used for unknown indication
     Dosage: UNK
  2. DIHYDROERGOTAMINE [Suspect]
     Active Substance: DIHYDROERGOTAMINE
     Indication: Migraine
  3. NITROGLYCERIN [Concomitant]
     Active Substance: NITROGLYCERIN
     Indication: Brachiocephalic artery stenosis
     Route: 003
  4. PHENTOLAMINE [Concomitant]
     Active Substance: PHENTOLAMINE
     Indication: Brachiocephalic artery stenosis
     Dosage: 5 MILLIGRAM
     Route: 058

REACTIONS (3)
  - Vasospasm [Recovered/Resolved]
  - Peripheral ischaemia [Recovered/Resolved]
  - Hypotension [Unknown]
